FAERS Safety Report 21802608 (Version 2)
Quarter: 2023Q1

REPORT INFORMATION
  Report Type: Spontaneous
  Country: JP (occurrence: JP)
  Receive Date: 20221231
  Receipt Date: 20230106
  Transmission Date: 20230417
  Serious: Yes (Hospitalization, Other)
  Sender: FDA-Public Use
  Company Number: JP-MLMSERVICE-2022120939735801

PATIENT
  Age: 51 Year
  Sex: Male
  Weight: 66 kg

DRUGS (12)
  1. ATROPINE SULFATE [Suspect]
     Active Substance: ATROPINE SULFATE
     Indication: Cholinergic syndrome
  2. FENTANYL [Suspect]
     Active Substance: FENTANYL
     Indication: Analgesic therapy
  3. PROPOFOL [Suspect]
     Active Substance: PROPOFOL
     Indication: Analgesic therapy
  4. QUAZEPAM [Concomitant]
     Active Substance: QUAZEPAM
  5. URAPIDIL [Concomitant]
     Active Substance: URAPIDIL
  6. DISTIGMINE BROMIDE [Concomitant]
     Active Substance: DISTIGMINE BROMIDE
     Dosage: FOR APPROXIMATELY 4.5 YEARS
     Route: 048
  7. VALPROATE SODIUM [Concomitant]
     Active Substance: VALPROATE SODIUM
  8. LEVOMEPROMAZINE MALEATE [Concomitant]
     Active Substance: LEVOMEPROMAZINE MALEATE
  9. RISPERIDONE [Concomitant]
     Active Substance: RISPERIDONE
  10. LEMBOREXANT [Concomitant]
     Active Substance: LEMBOREXANT
  11. CARBAMAZEPINE [Concomitant]
     Active Substance: CARBAMAZEPINE
  12. BETHANECHOL CHLORIDE [Concomitant]
     Active Substance: BETHANECHOL CHLORIDE

REACTIONS (1)
  - Gastrointestinal hypomotility [Recovered/Resolved]
